FAERS Safety Report 5006580-X (Version None)
Quarter: 2006Q2

REPORT INFORMATION
  Report Type: 
  Country: None (occurrence: None)
  Receive Date: 20060519
  Receipt Date: 20060505
  Transmission Date: 20061013
  Serious: Yes (Other)
  Sender: FDA-Public Use
  Company Number: HK-AVENTIS-200614897GDDC

PATIENT
  Age: 61 Year
  Sex: Female

DRUGS (6)
  1. GLIMEPIRIDE [Suspect]
     Indication: DIABETES MELLITUS NON-INSULIN-DEPENDENT
     Dosage: DOSE: UNK
     Route: 048
     Dates: start: 20050714, end: 20051127
  2. METFORMIN [Suspect]
     Indication: DIABETES MELLITUS NON-INSULIN-DEPENDENT
     Route: 048
     Dates: start: 19910816
  3. NIFEDIPINE [Concomitant]
     Dates: start: 20030301
  4. METOPROLOL TARTRATE [Concomitant]
     Dates: start: 20030301
  5. LANSOPRAZOLE [Concomitant]
     Dates: start: 20040818
  6. NAPROXEN [Concomitant]
     Dates: start: 20050708

REACTIONS (2)
  - BREAST CANCER [None]
  - BREAST CANCER FEMALE [None]
